FAERS Safety Report 5730513-1 (Version None)
Quarter: 2008Q2

REPORT INFORMATION
  Report Type: 
  Country: None (occurrence: None)
  Receive Date: 20080507
  Receipt Date: 20080425
  Transmission Date: 20081010
  Serious: Yes (Other)
  Sender: FDA-Public Use
  Company Number: JP-BRISTOL-MYERS SQUIBB COMPANY-14173777

PATIENT
  Age: 68 Year
  Sex: Male

DRUGS (13)
  1. ABILIFY [Suspect]
     Indication: SCHIZOPHRENIA
     Dosage: 3MGTID 19APR07TO30MAY07; 6MGTID 31MAY07TO05SEP07; 9MGTID 06SEP07TO23JAN08; 6MGBID 24JAN08 ONGOING
     Route: 048
     Dates: start: 20070419
  2. ALOSENN [Concomitant]
     Dates: start: 20070315
  3. ASPIRIN [Concomitant]
     Dates: start: 20070222
  4. MICARDIS [Concomitant]
     Dates: start: 20070222
  5. ARTIST [Concomitant]
     Dates: start: 20070222
  6. LIPITOR [Concomitant]
     Dates: start: 20070222
  7. PANALDINE [Concomitant]
     Dates: start: 20070222
  8. GASTER D [Concomitant]
     Dates: start: 20070222
  9. ITOROL [Concomitant]
     Dates: start: 20070222
  10. SIGMART [Concomitant]
     Dates: start: 20070222
  11. RISPERDAL [Concomitant]
     Dates: start: 20071214, end: 20080414
  12. FLUNITRAZEPAM [Concomitant]
     Dates: start: 20080124
  13. DAONIL [Concomitant]
     Dates: start: 20070222

REACTIONS (4)
  - CONDITION AGGRAVATED [None]
  - DELUSION [None]
  - HALLUCINATION [None]
  - SCHIZOPHRENIA [None]
